FAERS Safety Report 22616972 (Version 1)
Quarter: 2023Q2

REPORT INFORMATION
  Report Type: Report from Study
  Country: BR (occurrence: BR)
  Receive Date: 20230619
  Receipt Date: 20230619
  Transmission Date: 20230722
  Serious: Yes (Other)
  Sender: FDA-Public Use
  Company Number: BR-MALLINCKRODT-MNK202302523

PATIENT
  Age: 9 Year
  Sex: Male

DRUGS (5)
  1. UVADEX [Suspect]
     Active Substance: METHOXSALEN
     Indication: Chronic graft versus host disease in skin
     Dosage: UNKNOWN
     Route: 050
  2. UVADEX [Suspect]
     Active Substance: METHOXSALEN
     Indication: Chronic graft versus host disease oral
     Dosage: UNKNOWN
     Route: 050
  3. CYCLOSPORINE [Concomitant]
     Active Substance: CYCLOSPORINE
     Indication: Product used for unknown indication
     Dosage: UNKNOWN
  4. PREDNISONE [Concomitant]
     Active Substance: PREDNISONE
     Indication: Product used for unknown indication
     Dosage: UNKNOWN
  5. PREDNISONE [Concomitant]
     Active Substance: PREDNISONE
     Dosage: UNKNOWN (REDUCED APPROXIMATELY 50%)

REACTIONS (1)
  - Device related infection [Unknown]
